FAERS Safety Report 12736214 (Version 5)
Quarter: 2016Q4

REPORT INFORMATION
  Report Type: Spontaneous
  Country: US (occurrence: US)
  Receive Date: 20160913
  Receipt Date: 20161123
  Transmission Date: 20170207
  Serious: Yes (Hospitalization)
  Sender: FDA-Public Use
  Company Number: US-UNITED THERAPEUTICS-UNT-2016-014023

PATIENT
  Age: 12 Year
  Sex: Female
  Weight: 23.99 kg

DRUGS (10)
  1. REMODULIN [Suspect]
     Active Substance: TREPROSTINIL
     Dosage: 0.004 ?G/KG, CONTINUING
     Route: 058
  2. LETAIRIS [Suspect]
     Active Substance: AMBRISENTAN
     Indication: UNIVENTRICULAR HEART
     Dosage: 2.5 MG, QD
     Route: 048
     Dates: start: 20090820
  3. REMODULIN [Suspect]
     Active Substance: TREPROSTINIL
     Indication: PULMONARY HYPERTENSION
     Dosage: 0.001 ?G/KG, CONTINUING
     Route: 058
     Dates: start: 20160829, end: 20161002
  4. LETAIRIS [Suspect]
     Active Substance: AMBRISENTAN
     Indication: PULMONARY HYPERTENSION
     Dosage: 5 MG, QD
     Route: 048
  5. LETAIRIS [Suspect]
     Active Substance: AMBRISENTAN
     Indication: PULMONARY ARTERIAL HYPERTENSION
  6. MILRINONE [Concomitant]
     Active Substance: MILRINONE
     Indication: PRODUCT USED FOR UNKNOWN INDICATION
  7. REVATIO [Concomitant]
     Active Substance: SILDENAFIL CITRATE
     Indication: PRODUCT USED FOR UNKNOWN INDICATION
  8. REMODULIN [Suspect]
     Active Substance: TREPROSTINIL
     Dosage: 0.002 ?G/KG, CONTINUING
     Route: 058
  9. LETAIRIS [Suspect]
     Active Substance: AMBRISENTAN
     Indication: HEART DISEASE CONGENITAL
     Dosage: 1.25 MG, QD
     Route: 048
  10. WARFARIN [Concomitant]
     Active Substance: WARFARIN
     Indication: PRODUCT USED FOR UNKNOWN INDICATION

REACTIONS (15)
  - Ascites [Unknown]
  - Vomiting [Not Recovered/Not Resolved]
  - Oedema peripheral [Unknown]
  - Chest pain [Not Recovered/Not Resolved]
  - Pulmonary hypertension [Not Recovered/Not Resolved]
  - Infusion site pain [Recovered/Resolved]
  - Infusion site erythema [Recovered/Resolved]
  - Cardiac failure congestive [Not Recovered/Not Resolved]
  - Headache [Not Recovered/Not Resolved]
  - Device dislocation [Recovered/Resolved]
  - Pallor [Not Recovered/Not Resolved]
  - Chest discomfort [Not Recovered/Not Resolved]
  - Infusion site oedema [Recovered/Resolved]
  - Nausea [Not Recovered/Not Resolved]
  - Dyspnoea [Not Recovered/Not Resolved]

NARRATIVE: CASE EVENT DATE: 2016
